FAERS Safety Report 9360480 (Version 1)
Quarter: 2013Q2

REPORT INFORMATION
  Report Type: Spontaneous
  Country: DE (occurrence: DE)
  Receive Date: 20130621
  Receipt Date: 20130621
  Transmission Date: 20140414
  Serious: Yes (Congenital Anomaly, Other)
  Sender: FDA-Public Use
  Company Number: DE-UCBSA-089508

PATIENT
  Sex: Female
  Weight: 3.6 kg

DRUGS (4)
  1. EQUASYM [Suspect]
     Indication: DEPRESSION
     Dosage: 40 MG(TWO 20 MG DOSE FORMS)
     Route: 064
     Dates: start: 20071203, end: 20080122
  2. FLUOXETINE [Suspect]
     Indication: DEPRESSION
     Route: 064
     Dates: start: 20071203, end: 20080122
  3. DIPIPERON [Suspect]
     Indication: PSYCHOTIC DISORDER
     Dosage: 40 MG DAILY
     Route: 064
     Dates: start: 20071203, end: 20080122
  4. FOLIO FORTE [Concomitant]
     Route: 064

REACTIONS (7)
  - Premature baby [Unknown]
  - Atrial septal defect [Recovered/Resolved]
  - Patent ductus arteriosus [Recovered/Resolved]
  - Neonatal respiratory distress syndrome [Recovered/Resolved]
  - Hypoglycaemia neonatal [Recovered/Resolved]
  - Bradycardia neonatal [Recovered/Resolved]
  - Foetal exposure during pregnancy [Recovered/Resolved]
